FAERS Safety Report 25753445 (Version 1)
Quarter: 2025Q3

REPORT INFORMATION
  Report Type: Spontaneous
  Country: US (occurrence: US)
  Receive Date: 20250903
  Receipt Date: 20250903
  Transmission Date: 20251021
  Serious: No
  Sender: ROCHE
  Company Number: US-ROCHE-10000372996

PATIENT
  Sex: Male
  Weight: 62.59 kg

DRUGS (9)
  1. XOLAIR [Suspect]
     Active Substance: OMALIZUMAB
     Indication: Chronic spontaneous urticaria
     Route: 058
     Dates: start: 20250320
  2. CROMOLYN SODIUM [Concomitant]
     Active Substance: CROMOLYN SODIUM
     Indication: Mast cell activation syndrome
     Route: 048
     Dates: start: 20240507
  3. CROMOLYN SODIUM [Concomitant]
     Active Substance: CROMOLYN SODIUM
     Route: 048
  4. ALLEGRA [Concomitant]
     Active Substance: FEXOFENADINE HYDROCHLORIDE
     Route: 048
     Dates: start: 202402
  5. ALLEGRA [Concomitant]
     Active Substance: FEXOFENADINE HYDROCHLORIDE
  6. ALUMINUM HYDROXIDE\MAGNESIUM CARBONATE [Concomitant]
     Active Substance: ALUMINUM HYDROXIDE\MAGNESIUM CARBONATE
     Dates: start: 202404
  7. FLONASE [Concomitant]
     Active Substance: FLUTICASONE PROPIONATE
     Route: 045
  8. ZYRTEC [Concomitant]
     Active Substance: CETIRIZINE HYDROCHLORIDE
     Dates: start: 202406, end: 20250815
  9. IRON [Concomitant]
     Active Substance: IRON
     Indication: Blood iron decreased
     Dates: start: 202505

REACTIONS (4)
  - Drug ineffective [Unknown]
  - Blood iron decreased [Unknown]
  - Histamine level increased [Unknown]
  - Malaise [Unknown]
